FAERS Safety Report 12111446 (Version 1)
Quarter: 2016Q1

REPORT INFORMATION
  Report Type: Report from Study
  Country: US (occurrence: US)
  Receive Date: 20160224
  Receipt Date: 20160224
  Transmission Date: 20160526
  Serious: Yes (Hospitalization)
  Sender: FDA-Public Use
  Company Number: US-ACTELION-A-NJ2016-131611

PATIENT
  Age: 42 Year
  Sex: Female

DRUGS (10)
  1. NYSTOP [Concomitant]
     Active Substance: NYSTATIN
  2. MACITENTAN [Suspect]
     Active Substance: MACITENTAN
     Indication: PULMONARY HYPERTENSION
     Dosage: 10 MG, UNK
     Route: 048
  3. DILTIAZEM [Concomitant]
     Active Substance: DILTIAZEM
  4. TIKOSYN [Concomitant]
     Active Substance: DOFETILIDE
     Dosage: 125 UNK, UNK
  5. PROAIR HFA [Concomitant]
     Active Substance: ALBUTEROL SULFATE
  6. MEDROXYPROGESTERONE [Concomitant]
     Active Substance: MEDROXYPROGESTERONE
  7. TRAMADOL HCL [Concomitant]
     Active Substance: TRAMADOL HYDROCHLORIDE
  8. HYDROCODONE/ACETAMINOPHEN [Concomitant]
     Active Substance: ACETAMINOPHEN\HYDROCODONE
  9. FUROSEMIDE. [Concomitant]
     Active Substance: FUROSEMIDE
  10. WARFARIN [Concomitant]
     Active Substance: WARFARIN

REACTIONS (1)
  - Arrhythmia [Unknown]
